FAERS Safety Report 7248829-9 (Version None)
Quarter: 2011Q1

REPORT INFORMATION
  Report Type: 
  Country: None (occurrence: None)
  Receive Date: 20110128
  Receipt Date: 20110119
  Transmission Date: 20110831
  Serious: Yes (Life-Threatening, Other)
  Sender: FDA-Public Use
  Company Number: GB-RANBAXY-2011R1-41279

PATIENT
  Age: 3 Year
  Sex: Male
  Weight: 18.5 kg

DRUGS (3)
  1. IBUPROFEN [Concomitant]
     Indication: PRODUCT USED FOR UNKNOWN INDICATION
     Dosage: UNK
     Route: 065
  2. CALPOL [Concomitant]
     Indication: PRODUCT USED FOR UNKNOWN INDICATION
     Dosage: UNK
     Route: 065
  3. AMOXICILLIN [Suspect]
     Indication: UPPER RESPIRATORY TRACT INFECTION
     Dosage: 250 MG, UNK
     Route: 048
     Dates: start: 20100921, end: 20100921

REACTIONS (1)
  - ANAPHYLACTIC REACTION [None]
